FAERS Safety Report 21222415 (Version 1)
Quarter: 2022Q3

REPORT INFORMATION
  Report Type: Spontaneous
  Country: US (occurrence: None)
  Receive Date: 20220816
  Receipt Date: 20220816
  Transmission Date: 20221027
  Serious: Yes (Hospitalization)
  Sender: FDA-Public Use
  Company Number: None

PATIENT
  Sex: Female

DRUGS (7)
  1. SIMPONI [Suspect]
     Active Substance: GOLIMUMAB
     Indication: Ankylosing spondylitis
     Dosage: OTHER QUANTITY : 50MG/0.5ML;?FREQUENCY : MONTHLY;?
     Route: 058
     Dates: start: 20180215
  2. CELEBREX [Concomitant]
     Active Substance: CELECOXIB
  3. CYMBALTA CAP [Concomitant]
  4. D/FLUNISAL TAB [Concomitant]
  5. SYMBICORT [Concomitant]
  6. TIZANIDINE [Concomitant]
     Active Substance: TIZANIDINE
  7. VENTOLIN [Concomitant]
     Active Substance: ALBUTEROL SULFATE

REACTIONS (3)
  - Bronchitis [None]
  - Therapy interrupted [None]
  - Ankylosing spondylitis [None]
